FAERS Safety Report 14942416 (Version 2)
Quarter: 2018Q3

REPORT INFORMATION
  Report Type: Spontaneous
  Country: JP (occurrence: JP)
  Receive Date: 20180528
  Receipt Date: 20180808
  Transmission Date: 20181010
  Serious: Yes (Death, Other)
  Sender: FDA-Public Use
  Company Number: JP-ORION CORPORATION ORION PHARMA-ENT 2018-0055

PATIENT
  Age: 73 Year
  Sex: Male

DRUGS (1)
  1. COMTAN [Suspect]
     Active Substance: ENTACAPONE
     Indication: PRODUCT USED FOR UNKNOWN INDICATION
     Route: 048
     Dates: start: 200801, end: 201408

REACTIONS (6)
  - Death [Fatal]
  - Neuroleptic malignant syndrome [Unknown]
  - General physical health deterioration [Unknown]
  - Withdrawal syndrome [Unknown]
  - Parkinson^s disease [Unknown]
  - Dysphagia [Unknown]
